FAERS Safety Report 8185197-2 (Version None)
Quarter: 2012Q1

REPORT INFORMATION
  Report Type: 
  Country: None (occurrence: None)
  Receive Date: 20120305
  Receipt Date: 20120228
  Transmission Date: 20120608
  Serious: Yes (Other)
  Sender: FDA-Public Use
  Company Number: US-PFIZER INC-2012053149

PATIENT
  Sex: Male

DRUGS (4)
  1. TEKTURNA HCT [Concomitant]
     Indication: HYPERTENSION
     Dosage: 300/25 MG, UNK
  2. CHANTIX [Suspect]
     Indication: SMOKING CESSATION THERAPY
     Dosage: 0.5 MG, 1X/DAY
     Route: 048
     Dates: start: 20120113, end: 20120101
  3. CHANTIX [Suspect]
     Dosage: 1 MG, 2X/DAY
     Route: 048
     Dates: start: 20120101, end: 20120123
  4. CILOSTAZOL [Concomitant]
     Dosage: 100 MG, UNK

REACTIONS (4)
  - HYPERSENSITIVITY [None]
  - PRURITUS [None]
  - SKIN LESION [None]
  - RASH [None]
